FAERS Safety Report 24531551 (Version 1)
Quarter: 2024Q4

REPORT INFORMATION
  Report Type: Report from Study
  Country: MX (occurrence: MX)
  Receive Date: 20241022
  Receipt Date: 20241022
  Transmission Date: 20250114
  Serious: No
  Sender: ROCHE
  Company Number: MX-ROCHE-3467701

PATIENT
  Age: 3 Year
  Sex: Male
  Weight: 11.0 kg

DRUGS (14)
  1. PULMOZYME [Suspect]
     Active Substance: DORNASE ALFA
     Indication: Cystic fibrosis
     Route: 055
     Dates: start: 20210506
  2. PANCREATIN [Concomitant]
     Active Substance: PANCRELIPASE
     Dosage: GIVE BEFORE MEALS 3-3-3-2-3 WITHOUT STOPPING
     Route: 048
  3. MOMETASONE [Concomitant]
     Active Substance: MOMETASONE
     Dosage: DOSE AND FREQUENCY WERE NOT REPORTED
     Route: 055
  4. VITAMIN A [Concomitant]
     Active Substance: VITAMIN A
     Dosage: 5ML OF SYRUP
     Route: 048
  5. ERGOCALCIFEROL [Concomitant]
     Active Substance: ERGOCALCIFEROL
     Dosage: 5ML OF SYRUP
     Route: 048
  6. VITAMIN E [Concomitant]
     Active Substance: .ALPHA.-TOCOPHEROL
     Dosage: 5ML OF SYRUP
     Route: 048
  7. VITAMIN C [Concomitant]
     Active Substance: ASCORBIC ACID
     Dosage: 5ML OF SYRUP
     Route: 048
  8. THIAMINE [Concomitant]
     Active Substance: THIAMINE
     Dosage: 5ML OF SYRUP
     Route: 048
  9. RIBOFLAVIN [Concomitant]
     Active Substance: RIBOFLAVIN
     Dosage: 5ML OF SYRUP
     Route: 048
  10. PYRIDOXINE [Concomitant]
     Active Substance: PYRIDOXINE
     Dosage: 5ML OF SYRUP
     Route: 048
  11. CYANOCOBALAMIN [Concomitant]
     Active Substance: CYANOCOBALAMIN
     Dosage: 5ML OF SYRUP
     Route: 048
  12. NICOTINAMIDE [Concomitant]
     Active Substance: NIACINAMIDE
     Dosage: 5ML OF SYRUP
     Route: 048
  13. ELEMENTAL ZINC [Concomitant]
     Dosage: 5ML OF SYRUP
     Route: 048
  14. ALBUTEROL [Concomitant]
     Active Substance: ALBUTEROL
     Dosage: NEBULIZE 0.5 ML IN 2.5 ML OF SALINE SOLUTION
     Route: 055

REACTIONS (2)
  - Off label use [Unknown]
  - No adverse event [Unknown]
